FAERS Safety Report 25642325 (Version 1)
Quarter: 2025Q3

REPORT INFORMATION
  Report Type: Spontaneous
  Country: US (occurrence: US)
  Receive Date: 20250805
  Receipt Date: 20250805
  Transmission Date: 20251021
  Serious: No
  Sender: SANDOZ
  Company Number: US-SANDOZ-SDZ2025US054973

PATIENT
  Sex: Female
  Weight: 44.55 kg

DRUGS (1)
  1. ALBUTEROL SULFATE [Suspect]
     Active Substance: ALBUTEROL SULFATE
     Indication: Chronic obstructive pulmonary disease
     Route: 065

REACTIONS (2)
  - Incorrect dose administered by device [Unknown]
  - Product delivery mechanism issue [Unknown]
